FAERS Safety Report 17634641 (Version 4)
Quarter: 2022Q2

REPORT INFORMATION
  Report Type: Report from Study
  Country: None (occurrence: US)
  Receive Date: 20200407
  Receipt Date: 20220412
  Transmission Date: 20220721
  Serious: Yes (Other)
  Sender: FDA-Public Use
  Company Number: US-AKCEA THERAPEUTICS-2020IS001098

PATIENT
  Age: 71 Year
  Sex: Male

DRUGS (2)
  1. TEGSEDI [Suspect]
     Active Substance: INOTERSEN SODIUM
     Indication: Hereditary neuropathic amyloidosis
     Route: 058
     Dates: start: 2015, end: 202004
  2. DEVICE [Suspect]
     Active Substance: DEVICE

REACTIONS (15)
  - Unresponsive to stimuli [Unknown]
  - Neuropathy peripheral [Unknown]
  - Anxiety [Unknown]
  - Tremor [Unknown]
  - Respiration abnormal [Unknown]
  - Musculoskeletal stiffness [Unknown]
  - Presyncope [Unknown]
  - Dyskinesia [Unknown]
  - Akinesia [Unknown]
  - Diarrhoea [Unknown]
  - Abdominal pain [Unknown]
  - Nausea [Unknown]
  - Chills [Recovered/Resolved]
  - Influenza like illness [Recovered/Resolved]
  - Product quality issue [Unknown]

NARRATIVE: CASE EVENT DATE: 20200229
